FAERS Safety Report 9850124 (Version 1)
Quarter: 2014Q1

REPORT INFORMATION
  Report Type: Spontaneous
  Country: US (occurrence: None)
  Receive Date: 20140127
  Receipt Date: 20140127
  Transmission Date: 20141002
  Serious: Yes (Hospitalization)
  Sender: FDA-Public Use
  Company Number: None

PATIENT
  Age: 56 Year
  Sex: Male
  Weight: 48 kg

DRUGS (2)
  1. CARBOPLATIN [Suspect]
     Dates: end: 20120518
  2. TOPOTECAN [Suspect]
     Dates: end: 20120518

REACTIONS (1)
  - Mucosal inflammation [None]
